FAERS Safety Report 10354446 (Version 1)
Quarter: 2014Q3

REPORT INFORMATION
  Report Type: Spontaneous
  Country: GB (occurrence: None)
  Receive Date: 20140729
  Receipt Date: 20140729
  Transmission Date: 20150326
  Serious: Yes (Hospitalization)
  Sender: FDA-Public Use
  Company Number: 2014-002176

PATIENT
  Age: 56 Year
  Sex: Female
  Weight: 77.8 kg

DRUGS (1)
  1. ACTONEL [Suspect]
     Active Substance: RISEDRONATE SODIUM
     Indication: OSTEOPENIA
     Dosage: ONCE WEEKLY,
     Route: 048
     Dates: start: 2005, end: 201309

REACTIONS (1)
  - Atypical femur fracture [None]

NARRATIVE: CASE EVENT DATE: 20130718
